FAERS Safety Report 18605480 (Version 1)
Quarter: 2020Q4

REPORT INFORMATION
  Report Type: Spontaneous
  Country: US (occurrence: US)
  Receive Date: 20201211
  Receipt Date: 20201211
  Transmission Date: 20210114
  Serious: Yes (Other)
  Sender: FDA-Public Use
  Company Number: US-PFIZER INC-2020445069

PATIENT
  Age: 57 Year
  Sex: Female
  Weight: 74.84 kg

DRUGS (5)
  1. DESVENLAFAXINE SUCCINATE MONOHYDRATE [Suspect]
     Active Substance: DESVENLAFAXINE SUCCINATE
     Indication: GENERALISED ANXIETY DISORDER
  2. AMBIEN [Concomitant]
     Active Substance: ZOLPIDEM TARTRATE
     Indication: SLEEP DISORDER
     Dosage: 5-10 MG, DAILY
  3. DESVENLAFAXINE SUCCINATE MONOHYDRATE [Suspect]
     Active Substance: DESVENLAFAXINE SUCCINATE
     Indication: DEPRESSION
     Dosage: 100 MG, 1X/DAY
     Route: 048
     Dates: start: 202001, end: 202002
  4. KLONOPIN [Concomitant]
     Active Substance: CLONAZEPAM
     Indication: ANXIETY
     Dosage: 0.5 MG, 2X/DAY [0.5 MG BID (TWICE A DAY)]
  5. DESVENLAFAXINE SUCCINATE MONOHYDRATE [Suspect]
     Active Substance: DESVENLAFAXINE SUCCINATE
     Indication: ANXIETY

REACTIONS (8)
  - Suicidal ideation [Recovered/Resolved]
  - Hypersomnia [Recovered/Resolved]
  - Irritability [Recovered/Resolved]
  - Therapeutic product effect incomplete [Recovered/Resolved]
  - Fatigue [Recovered/Resolved]
  - Anhedonia [Recovered/Resolved]
  - Agitation [Recovered/Resolved]
  - Emotional disorder [Unknown]

NARRATIVE: CASE EVENT DATE: 202001
